FAERS Safety Report 14020894 (Version 1)
Quarter: 2017Q3

REPORT INFORMATION
  Report Type: Spontaneous
  Country: US (occurrence: US)
  Receive Date: 20170928
  Receipt Date: 20170928
  Transmission Date: 20171128
  Serious: Yes (Other)
  Sender: FDA-Public Use
  Company Number: US-FRESENIUS KABI-FK201708083

PATIENT

DRUGS (2)
  1. VANCOMYCIN (MANUFACTURER UNKNOWN) [Suspect]
     Active Substance: VANCOMYCIN
     Indication: CLOSTRIDIUM DIFFICILE INFECTION
     Route: 048
  2. LEVOFLOXACIN (MANUFACTURER UNKNOWN) [Suspect]
     Active Substance: LEVOFLOXACIN
     Indication: CLOSTRIDIUM DIFFICILE INFECTION

REACTIONS (2)
  - Clostridium difficile infection [Recovered/Resolved]
  - Transplant failure [Recovered/Resolved]
